FAERS Safety Report 5894327-4 (Version None)
Quarter: 2008Q3

REPORT INFORMATION
  Report Type: 
  Country: None (occurrence: None)
  Receive Date: 20080922
  Receipt Date: 20080917
  Transmission Date: 20090109
  Serious: Yes (Death, Hospitalization)
  Sender: FDA-Public Use
  Company Number: US023996

PATIENT
  Age: 64 Year
  Sex: Male
  Weight: 98.4306 kg

DRUGS (4)
  1. TREANDA [Suspect]
     Indication: CHRONIC LYMPHOCYTIC LEUKAEMIA
     Dosage: 100 MG/M2 RECOMMENDED DOSE Q 28 DAYS; RECEIVED TWO DOSES ON TWO CONSECUTIVE DAYS INTRAVENOUS
     Dates: start: 20080522, end: 20080523
  2. NIASPAN [Concomitant]
  3. ASPIRIN [Concomitant]
  4. EFFEXOR [Concomitant]

REACTIONS (10)
  - BLOOD CULTURE POSITIVE [None]
  - BONE MARROW FAILURE [None]
  - CELLULITIS [None]
  - ESCHERICHIA SEPSIS [None]
  - HERPES ZOSTER [None]
  - ORAL CANDIDIASIS [None]
  - PANCYTOPENIA [None]
  - PYREXIA [None]
  - SKIN LESION [None]
  - STAPHYLOCOCCAL INFECTION [None]
